FAERS Safety Report 13706161 (Version 2)
Quarter: 2017Q3

REPORT INFORMATION
  Report Type: Spontaneous
  Country: CH (occurrence: CH)
  Receive Date: 20170630
  Receipt Date: 20170721
  Transmission Date: 20171127
  Serious: Yes (Hospitalization)
  Sender: FDA-Public Use
  Company Number: CH-TEVA-781590ISR

PATIENT
  Age: 20 Year
  Sex: Male
  Weight: 76 kg

DRUGS (2)
  1. VOLTAREN [Suspect]
     Active Substance: DICLOFENAC SODIUM
     Indication: WISDOM TEETH REMOVAL
     Dosage: 100 MILLIGRAM DAILY;
     Route: 048
     Dates: start: 20170323, end: 20170327
  2. AMOXICILLIN AND CLAVULANATE POTASSIUM [Suspect]
     Active Substance: AMOXICILLIN\CLAVULANATE POTASSIUM
     Indication: WISDOM TEETH REMOVAL
     Route: 048
     Dates: start: 20170323, end: 20170326

REACTIONS (2)
  - Acute kidney injury [Recovered/Resolved]
  - Tubulointerstitial nephritis [Recovered/Resolved]

NARRATIVE: CASE EVENT DATE: 20170324
